FAERS Safety Report 6333446-5 (Version None)
Quarter: 2009Q3

REPORT INFORMATION
  Report Type: 
  Country: None (occurrence: None)
  Receive Date: 20090828
  Receipt Date: 20090819
  Transmission Date: 20100115
  Serious: Yes (Other)
  Sender: FDA-Public Use
  Company Number: PHHY2009AR33907

PATIENT
  Sex: Male

DRUGS (2)
  1. CLOZAPINE [Suspect]
     Indication: SCHIZOPHRENIA
     Dosage: 250 MG/DAY
     Dates: start: 19970924, end: 20090812
  2. CLONAZEPAM [Concomitant]

REACTIONS (5)
  - HAEMANGIOMA OF LIVER [None]
  - LEUKOPENIA [None]
  - NEUTROPHIL COUNT DECREASED [None]
  - SPLEEN DISORDER [None]
  - WHITE BLOOD CELL COUNT DECREASED [None]
